FAERS Safety Report 9413015 (Version 1)
Quarter: 2013Q3

REPORT INFORMATION
  Report Type: Spontaneous
  Country: US (occurrence: US)
  Receive Date: 20130722
  Receipt Date: 20130722
  Transmission Date: 20140515
  Serious: Yes (Other)
  Sender: FDA-Public Use
  Company Number: US-GLAXOSMITHKLINE-A1033584A

PATIENT
  Age: 53 Year
  Sex: Male

DRUGS (3)
  1. ADVAIR [Suspect]
     Indication: EMPHYSEMA
     Dosage: 1PUFF TWICE PER DAY
     Route: 055
     Dates: start: 2007
  2. DUONEB [Concomitant]
  3. PRO-AIR [Concomitant]

REACTIONS (1)
  - Lung infection [Recovering/Resolving]
